FAERS Safety Report 22276328 (Version 1)
Quarter: 2023Q2

REPORT INFORMATION
  Report Type: Report from Study
  Country: US (occurrence: US)
  Receive Date: 20230503
  Receipt Date: 20230503
  Transmission Date: 20230721
  Serious: Yes (Other)
  Sender: FDA-Public Use
  Company Number: US-ABBVIE-4748586

PATIENT
  Age: 85 Year
  Sex: Male

DRUGS (3)
  1. LUPRON [Suspect]
     Active Substance: LEUPROLIDE ACETATE
     Indication: Product used for unknown indication
  2. XTANDI [Suspect]
     Active Substance: ENZALUTAMIDE
     Indication: Neoplasm
     Route: 048
     Dates: start: 202107, end: 202212
  3. XTANDI [Suspect]
     Active Substance: ENZALUTAMIDE
     Indication: Neoplasm
     Dosage: PM/BED TIME
     Route: 048
     Dates: start: 20221201

REACTIONS (3)
  - Neoplasm [Unknown]
  - Fatigue [Unknown]
  - Cognitive disorder [Unknown]

NARRATIVE: CASE EVENT DATE: 20210701
